FAERS Safety Report 9968954 (Version 1)
Quarter: 2014Q1

REPORT INFORMATION
  Report Type: Report from Study
  Country: US (occurrence: US)
  Receive Date: 20140306
  Receipt Date: 20140306
  Transmission Date: 20141002
  Serious: No
  Sender: FDA-Public Use
  Company Number: US-ABBVIE-13P-163-1145150-00

PATIENT
  Age: 54 Year
  Sex: Male

DRUGS (11)
  1. HUMIRA [Suspect]
     Indication: COLITIS ULCERATIVE
     Dosage: LOADING DOSE
     Dates: start: 20130825
  2. HYDROCHLOROTHIAZIDE [Concomitant]
     Indication: HYPERTENSION
  3. ANAPRIL [Concomitant]
     Indication: HYPERTENSION
  4. OMEPRAZOLE [Concomitant]
     Indication: GASTROOESOPHAGEAL REFLUX DISEASE
  5. GLIPIZIDE [Concomitant]
     Indication: DIABETES MELLITUS
  6. TRAMADOL [Concomitant]
     Indication: OSTEOARTHRITIS
     Dosage: 1 IN AM, 2 IN AFTERNOON, 1 IN PM
  7. BALSALAZIDE [Concomitant]
     Indication: COLITIS ULCERATIVE
     Dosage: 5 IN AM, 4 IN PM
  8. VIT D [Concomitant]
     Indication: PRODUCT USED FOR UNKNOWN INDICATION
     Dosage: DAILY
  9. IRON [Concomitant]
     Indication: PRODUCT USED FOR UNKNOWN INDICATION
     Dosage: DAILY
  10. ADVAIR [Concomitant]
     Indication: CHRONIC OBSTRUCTIVE PULMONARY DISEASE
     Dosage: INHALER
  11. HYDROCORTISONE [Concomitant]
     Indication: COLITIS ULCERATIVE
     Dosage: IN PM BEFORE BED

REACTIONS (1)
  - Upper respiratory tract infection [Recovering/Resolving]
